FAERS Safety Report 9226052 (Version 1)
Quarter: 2013Q1

REPORT INFORMATION
  Report Type: Spontaneous
  Country: US (occurrence: None)
  Receive Date: 20120921
  Receipt Date: 20120921
  Transmission Date: 20140127
  Serious: Yes (Hospitalization, Disabling, Other)
  Sender: FDA-Public Use
  Company Number: WAES1203USA00646

PATIENT
  Age: 60 Year
  Sex: Male

DRUGS (2)
  1. VYTORIN [Suspect]
     Route: 048
  2. VERAPAMIL [Concomitant]

REACTIONS (1)
  - Rhabdomyolysis [None]
